FAERS Safety Report 6307906-7 (Version None)
Quarter: 2009Q3

REPORT INFORMATION
  Report Type: 
  Country: None (occurrence: None)
  Receive Date: 20090813
  Receipt Date: 20090808
  Transmission Date: 20100115
  Serious: No
  Sender: FDA-Public Use
  Company Number: US-B.I. PHARMACEUTICALS,INC./RIDGEFIELD-2009-BP-09421BP

PATIENT
  Sex: Male

DRUGS (4)
  1. FLOMAX [Suspect]
     Indication: BENIGN PROSTATIC HYPERPLASIA
     Dosage: 0.4 MG
     Route: 048
     Dates: start: 20090717, end: 20090731
  2. ALPHAGAN [Concomitant]
     Indication: GLAUCOMA
  3. LUMIGAN [Concomitant]
     Indication: GLAUCOMA
  4. SAW PALMETTO [Concomitant]

REACTIONS (3)
  - INSOMNIA [None]
  - MUSCLE FATIGUE [None]
  - MUSCULAR WEAKNESS [None]
